FAERS Safety Report 23428005 (Version 1)
Quarter: 2024Q1

REPORT INFORMATION
  Report Type: Spontaneous
  Country: CN (occurrence: CN)
  Receive Date: 20240122
  Receipt Date: 20240122
  Transmission Date: 20240410
  Serious: Yes (Life-Threatening)
  Sender: FDA-Public Use
  Company Number: CN-BAYER-2024A012502

PATIENT
  Age: 66 Year
  Sex: Male

DRUGS (2)
  1. ULTRAVIST [Suspect]
     Active Substance: IOPROMIDE
     Indication: Angiogram
     Dosage: UNK UNK, ONCE
     Route: 042
     Dates: start: 20240119, end: 20240119
  2. ULTRAVIST [Suspect]
     Active Substance: IOPROMIDE
     Indication: Thyroid mass

REACTIONS (2)
  - Anaphylactic shock [None]
  - Syncope [None]

NARRATIVE: CASE EVENT DATE: 20240119
